FAERS Safety Report 6399186-1 (Version None)
Quarter: 2009Q4

REPORT INFORMATION
  Report Type: 
  Country: None (occurrence: None)
  Receive Date: 20091008
  Receipt Date: 20091002
  Transmission Date: 20100525
  Serious: Yes (Hospitalization)
  Sender: FDA-Public Use
  Company Number: 2009010917

PATIENT
  Age: 62 Year
  Sex: Male
  Weight: 88 kg

DRUGS (9)
  1. TREANDA [Suspect]
     Dosage: 168 MG (168 MG, 1 IN 1 D), INFUSION
     Dates: start: 20090831, end: 20090901
  2. CAMPATH [Suspect]
     Dosage: 30 MG (30 MG, 1 IN 1 D), SUBCUTANEOUS
     Route: 058
     Dates: start: 20090831, end: 20090902
  3. ACYCLOVIR [Concomitant]
  4. BACTRIM [Concomitant]
  5. ALLOPURINOL [Concomitant]
  6. OMEPRAZOLE [Concomitant]
  7. ITRACONAZOLE [Concomitant]
  8. PREDNISONE TAB [Concomitant]
  9. G-CSF (GRANULOCYTE COLONY STIMULATING FACTOR) [Concomitant]

REACTIONS (3)
  - CYTOMEGALOVIRUS TEST POSITIVE [None]
  - PYREXIA [None]
  - VIRAL TEST POSITIVE [None]
